FAERS Safety Report 9217613 (Version 3)
Quarter: 2013Q2

REPORT INFORMATION
  Report Type: Report from Study
  Country: US (occurrence: US)
  Receive Date: 20130408
  Receipt Date: 20130430
  Transmission Date: 20140414
  Serious: Yes (Hospitalization)
  Sender: FDA-Public Use
  Company Number: US-ROCHE-1211369

PATIENT
  Age: 75 Year
  Sex: Female

DRUGS (4)
  1. CELLCEPT [Suspect]
     Indication: AUTOIMMUNE HEPATITIS
     Route: 048
  2. CELLCEPT [Suspect]
     Route: 048
     Dates: end: 20130102
  3. CELLCEPT [Suspect]
     Route: 048
     Dates: start: 20130306
  4. CELLCEPT [Suspect]
     Route: 048
     Dates: start: 20130410

REACTIONS (2)
  - Fracture [Unknown]
  - Fall [Unknown]
